FAERS Safety Report 21391343 (Version 1)
Quarter: 2022Q3

REPORT INFORMATION
  Report Type: Spontaneous
  Country: US (occurrence: US)
  Receive Date: 20220929
  Receipt Date: 20220929
  Transmission Date: 20221027
  Serious: No
  Sender: FDA-Public Use
  Company Number: US-009507513-2209USA006935

PATIENT
  Age: 66 Year
  Sex: Male

DRUGS (1)
  1. MOLNUPIRAVIR [Suspect]
     Active Substance: MOLNUPIRAVIR
     Indication: COVID-19 treatment
     Dosage: FOUR 200MG TABLETS BY MOUTH EVERY 12 HOURS FOR FIVE DAYS.
     Route: 048
     Dates: start: 20220915, end: 20220920

REACTIONS (4)
  - Pruritus [Unknown]
  - Erythema [Unknown]
  - Urticaria [Unknown]
  - Rash [Unknown]

NARRATIVE: CASE EVENT DATE: 20220917
